FAERS Safety Report 5096692-7 (Version None)
Quarter: 2006Q3

REPORT INFORMATION
  Report Type: 
  Country: None (occurrence: None)
  Receive Date: 20060831
  Receipt Date: 20060817
  Transmission Date: 20061208
  Serious: Yes (Other)
  Sender: FDA-Public Use
  Company Number: 2006S1000199

PATIENT
  Age: 42 Year
  Sex: Male

DRUGS (1)
  1. ACITRETIN [Suspect]
     Indication: PSORIASIS
     Dosage: PO
     Route: 048

REACTIONS (3)
  - HALLUCINATION, AUDITORY [None]
  - PERSECUTORY DELUSION [None]
  - PSYCHOTIC DISORDER [None]
